FAERS Safety Report 9841225 (Version 2)
Quarter: 2014Q1

REPORT INFORMATION
  Report Type: Report from Study
  Country: GB (occurrence: GB)
  Receive Date: 20140124
  Receipt Date: 20140208
  Transmission Date: 20141002
  Serious: Yes (Other)
  Sender: FDA-Public Use
  Company Number: GB-VERTEX PHARMACEUTICALS INC-2014-000320

PATIENT
  Age: 66 Year
  Sex: Male

DRUGS (3)
  1. VX-950 (TELAPREVIR) [Suspect]
     Indication: HEPATITIS C
     Dosage: 1125 MG, BID
     Route: 048
     Dates: start: 20131205, end: 20140123
  2. RIBAVIRIN [Suspect]
     Indication: HEPATITIS C
     Dosage: UNK UNK, BID
     Route: 048
     Dates: end: 20140123
  3. PEG INTERFERON [Suspect]
     Indication: HEPATITIS C
     Dosage: UNK UNK, QW
     Route: 058
     Dates: end: 20140123

REACTIONS (3)
  - Rash pruritic [Not Recovered/Not Resolved]
  - Anaemia [Not Recovered/Not Resolved]
  - Pruritus [Not Recovered/Not Resolved]
